FAERS Safety Report 8962343 (Version 1)
Quarter: 2012Q4

REPORT INFORMATION
  Report Type: Spontaneous
  Country: US (occurrence: None)
  Receive Date: 20121211
  Receipt Date: 20121211
  Transmission Date: 20130627
  Serious: Yes (Death)
  Sender: FDA-Public Use
  Company Number: None

PATIENT
  Age: 51 Year
  Sex: Male

DRUGS (1)
  1. GLUMETZA [Suspect]
     Indication: DIABETES
     Dates: start: 20110818, end: 20111101

REACTIONS (3)
  - Convulsion [None]
  - Myocardial infarction [None]
  - Malaise [None]
